FAERS Safety Report 6967929-1 (Version None)
Quarter: 2010Q3

REPORT INFORMATION
  Report Type: 
  Country: None (occurrence: None)
  Receive Date: 20100907
  Receipt Date: 20100826
  Transmission Date: 20110219
  Serious: Yes (Life-Threatening)
  Sender: FDA-Public Use
  Company Number: DE-JNJFOC-20100705176

PATIENT
  Sex: Male

DRUGS (5)
  1. ABCIXIMAB [Suspect]
     Indication: MYOCARDIAL INFARCTION
     Dosage: @11:36
     Route: 022
  2. ABCIXIMAB [Suspect]
     Dosage: @22:00, OVER 10 HOURS 22 MINUTES
     Route: 042
  3. ACETYLSALICYLIC ACID [Concomitant]
     Indication: MYOCARDIAL INFARCTION
  4. CLOPIDOGREL [Concomitant]
     Indication: MYOCARDIAL INFARCTION
     Route: 048
  5. HEPARIN [Concomitant]
     Indication: MYOCARDIAL INFARCTION
     Route: 041

REACTIONS (9)
  - AORTIC DISSECTION [None]
  - ATRIAL FIBRILLATION [None]
  - CLOSTRIDIAL INFECTION [None]
  - DIARRHOEA [None]
  - PLEURAL EFFUSION [None]
  - PNEUMOTHORAX [None]
  - TACHYCARDIA [None]
  - THROMBOCYTOPENIA [None]
  - TRANSIENT ISCHAEMIC ATTACK [None]
